FAERS Safety Report 5814195-6 (Version None)
Quarter: 2008Q3

REPORT INFORMATION
  Report Type: 
  Country: None (occurrence: None)
  Receive Date: 20080715
  Receipt Date: 20080702
  Transmission Date: 20090109
  Serious: Yes (Hospitalization)
  Sender: FDA-Public Use
  Company Number: 2008MB000080

PATIENT
  Sex: Male

DRUGS (2)
  1. CEPHALEXIN [Suspect]
     Indication: INFECTION
     Dosage: 500 MG; TID
     Dates: start: 20080521
  2. INVESTIGATIONAL DRUG (INVESTIGATIONAL DRUG) [Suspect]
     Indication: DRUG USE FOR UNKNOWN INDICATION
     Dosage: 500 MG; TID
     Dates: start: 20080625, end: 20080626

REACTIONS (1)
  - PNEUMONIA [None]
